FAERS Safety Report 18543905 (Version 1)
Quarter: 2020Q4

REPORT INFORMATION
  Report Type: Spontaneous
  Country: US (occurrence: US)
  Receive Date: 20201125
  Receipt Date: 20201125
  Transmission Date: 20210114
  Serious: Yes (Other)
  Sender: FDA-Public Use
  Company Number: US-HIKMA PHARMACEUTICALS USA INC.-US-H14001-20-52647

PATIENT
  Age: 74 Year
  Sex: Female

DRUGS (5)
  1. PREDNISONE. [Suspect]
     Active Substance: PREDNISONE
     Indication: RETINITIS VIRAL
     Route: 048
  2. AZATHIOPRINE. [Suspect]
     Active Substance: AZATHIOPRINE
     Indication: DERMATOMYOSITIS
     Dosage: UNKNOWN
     Route: 065
  3. PREDNISOLONE ACETATE. [Suspect]
     Active Substance: PREDNISOLONE ACETATE
     Indication: PRODUCT USED FOR UNKNOWN INDICATION
     Dosage: UNKNOWN
     Route: 061
  4. TRIAMCINOLONE [Suspect]
     Active Substance: TRIAMCINOLONE
     Indication: PRODUCT USED FOR UNKNOWN INDICATION
  5. IMMUNOGLOBULINS [Concomitant]
     Indication: DERMATOMYOSITIS
     Dosage: UNKNOWN
     Route: 042

REACTIONS (5)
  - Eye infection toxoplasmal [Recovering/Resolving]
  - Uveitis [Recovering/Resolving]
  - Rhegmatogenous retinal detachment [Recovering/Resolving]
  - Tractional retinal detachment [Recovering/Resolving]
  - Blindness [Not Recovered/Not Resolved]
